FAERS Safety Report 22518080 (Version 2)
Quarter: 2023Q2

REPORT INFORMATION
  Report Type: Spontaneous
  Country: JP (occurrence: JP)
  Receive Date: 20230605
  Receipt Date: 20230626
  Transmission Date: 20230722
  Serious: Yes (Hospitalization)
  Sender: FDA-Public Use
  Company Number: JP-Vifor (International) Inc.-VIT-2023-03917

PATIENT
  Age: 70 Year
  Sex: Female
  Weight: 36 kg

DRUGS (9)
  1. TAVNEOS [Suspect]
     Active Substance: AVACOPAN
     Indication: Microscopic polyangiitis
     Dosage: 30 MILLIGRAM
     Route: 048
     Dates: start: 20230418, end: 20230523
  2. ISCOTIN [Suspect]
     Active Substance: ISONIAZID
     Indication: Latent tuberculosis
     Dosage: 200 MILLIGRAM, QD
     Route: 065
     Dates: end: 20230524
  3. SULFAMETHOXAZOLE\TRIMETHOPRIM [Suspect]
     Active Substance: SULFAMETHOXAZOLE\TRIMETHOPRIM
     Indication: Antifungal prophylaxis
     Dosage: 2 DOSAGE FORM, QD
     Route: 065
     Dates: start: 20230418, end: 20230524
  4. LANSOPRAZOLE [Concomitant]
     Active Substance: LANSOPRAZOLE
     Indication: Prophylaxis against gastrointestinal ulcer
     Dosage: 15 MILLIGRAM, QD
     Dates: start: 20230401
  5. PYRIDOXAL [Concomitant]
     Active Substance: PYRIDOXAL
     Indication: Vitamin supplementation
     Dosage: 10 MILLIGRAM, QD
     Dates: end: 20230524
  6. PERINDOPRIL ERBUMINE [Concomitant]
     Active Substance: PERINDOPRIL ERBUMINE
     Indication: Hypertension
     Dosage: 4 MILLIGRAM, QD
     Dates: start: 20230406
  7. LUNESTA [Concomitant]
     Active Substance: ESZOPICLONE
     Indication: Insomnia
     Dosage: 2 MILLIGRAM, QD
  8. RISEDRONATE SODIUM HEMI-PENTAHYDRATE [Concomitant]
     Active Substance: RISEDRONATE SODIUM HEMI-PENTAHYDRATE
     Indication: Osteoporosis
     Dosage: 17.5 MILLIGRAM, QWK
     Dates: start: 20230411
  9. ELDECALCITOL [Concomitant]
     Active Substance: ELDECALCITOL
     Indication: Osteoporosis
     Dosage: 0.75 MICROGRAM, QD
     Dates: start: 20230411

REACTIONS (3)
  - Cholestasis [Not Recovered/Not Resolved]
  - Pruritus [Unknown]
  - Faeces discoloured [Unknown]

NARRATIVE: CASE EVENT DATE: 20230520
